FAERS Safety Report 4505223-9 (Version None)
Quarter: 2004Q4

REPORT INFORMATION
  Report Type: 
  Country: None (occurrence: None)
  Receive Date: 20041118
  Receipt Date: 20041118
  Transmission Date: 20050328
  Serious: No
  Sender: FDA-Public Use
  Company Number: None

PATIENT

DRUGS (1)
  1. PEG INTERFERON - REBITROL [Suspect]
     Indication: HEPATITIS C

REACTIONS (2)
  - FACTOR VIII INHIBITION [None]
  - HAEMORRHAGE [None]
